FAERS Safety Report 6762309-6 (Version None)
Quarter: 2010Q2

REPORT INFORMATION
  Report Type: 
  Country: None (occurrence: None)
  Receive Date: 20100609
  Receipt Date: 20100526
  Transmission Date: 20101027
  Serious: Yes (Hospitalization, Other)
  Sender: FDA-Public Use
  Company Number: PHHY2010IL29553

PATIENT
  Age: 60 Year
  Sex: Female

DRUGS (1)
  1. RASILEZ [Suspect]
     Indication: HYPERTENSION
     Dosage: 300 MG
     Route: 048

REACTIONS (4)
  - CARDIAC TAMPONADE [None]
  - PERICARDIAL EFFUSION [None]
  - PERICARDIAL HAEMORRHAGE [None]
  - RENAL FAILURE [None]
